FAERS Safety Report 9909691 (Version 1)
Quarter: 2014Q1

REPORT INFORMATION
  Report Type: Spontaneous
  Country: US (occurrence: None)
  Receive Date: 20140218
  Receipt Date: 20140218
  Transmission Date: 20141002
  Serious: Yes (Hospitalization, Disabling, Other)
  Sender: FDA-Public Use
  Company Number: None

PATIENT
  Age: 19 Year
  Sex: Female
  Weight: 57.61 kg

DRUGS (2)
  1. STRATTERA [Suspect]
     Indication: ATTENTION DEFICIT/HYPERACTIVITY DISORDER
     Dosage: THREE TEN MILLIGRAM PILLS?ONCE DAILY TAKEN BY MOUTH
     Route: 048
  2. STRATTERA [Suspect]
     Indication: DEPRESSION
     Dosage: THREE TEN MILLIGRAM PILLS?ONCE DAILY TAKEN BY MOUTH
     Route: 048

REACTIONS (4)
  - Aphasia [None]
  - Headache [None]
  - Constipation [None]
  - Bradyphrenia [None]
